FAERS Safety Report 7135354-9 (Version None)
Quarter: 2010Q4

REPORT INFORMATION
  Report Type: 
  Country: None (occurrence: None)
  Receive Date: 20101203
  Receipt Date: 20101119
  Transmission Date: 20110411
  Serious: Yes (Other)
  Sender: FDA-Public Use
  Company Number: US-SANOFI-AVENTIS-2010SA070809

PATIENT
  Age: 76 Year
  Sex: Female
  Weight: 62.58 kg

DRUGS (7)
  1. PLAVIX [Suspect]
     Indication: STENT PLACEMENT
     Route: 048
     Dates: start: 20101014
  2. PLAVIX [Suspect]
     Route: 048
     Dates: start: 20101014
  3. LIPITOR [Concomitant]
  4. LISINOPRIL [Concomitant]
  5. METOPROLOL [Concomitant]
  6. NITROGLYCERIN [Concomitant]
  7. ASPIRIN [Concomitant]

REACTIONS (11)
  - CONTUSION [None]
  - FEELING ABNORMAL [None]
  - HAEMATOCRIT DECREASED [None]
  - HAEMOGLOBIN DECREASED [None]
  - IDIOPATHIC THROMBOCYTOPENIC PURPURA [None]
  - INCISION SITE HAEMATOMA [None]
  - INCISION SITE HAEMORRHAGE [None]
  - INFLAMMATION [None]
  - POST PROCEDURAL INFECTION [None]
  - PROCEDURAL PAIN [None]
  - PROTHROMBIN TIME RATIO DECREASED [None]
